FAERS Safety Report 18832616 (Version 1)
Quarter: 2021Q1

REPORT INFORMATION
  Report Type: Spontaneous
  Country: IT (occurrence: IT)
  Receive Date: 20210203
  Receipt Date: 20210203
  Transmission Date: 20210419
  Serious: Yes (Other)
  Sender: FDA-Public Use
  Company Number: IT-AUROBINDO-AUR-APL-2013-07161

PATIENT
  Age: 79 Year
  Sex: Female
  Weight: 55 kg

DRUGS (6)
  1. LORAZEPAM AUROBINDO 1MG TABLETS [Suspect]
     Active Substance: LORAZEPAM
     Indication: DEPRESSION
     Dosage: 1 DF,DAILY,
     Route: 048
     Dates: start: 20130101, end: 20130616
  2. TAVOR (SIMVASTATIN) [Suspect]
     Active Substance: SIMVASTATIN
     Indication: DEPRESSION
     Dosage: 1 DF,AS NECESSARY,
     Route: 048
     Dates: start: 20130101, end: 20130616
  3. LORMETAZEPAM AUROBINDO ITALIA 2.5MG ORAL DROPS, SOLUTION [Suspect]
     Active Substance: LORMETAZEPAM
     Indication: DEPRESSION
     Dosage: UNK UNK,DAILY,,10 DROPS DAILY
     Route: 048
     Dates: start: 20130101, end: 20130616
  4. ENALAPRIL [Concomitant]
     Active Substance: ENALAPRIL
     Indication: PRODUCT USED FOR UNKNOWN INDICATION
     Dosage: UNK UNK,UNK,
     Route: 065
  5. LANSOX [Concomitant]
     Active Substance: LANSOPRAZOLE
     Indication: PRODUCT USED FOR UNKNOWN INDICATION
     Dosage: 15 MILLIGRAM
     Route: 065
  6. CARDIOASPIRIN [Concomitant]
     Active Substance: ASPIRIN
     Indication: PRODUCT USED FOR UNKNOWN INDICATION
     Dosage: 100 MILLIGRAM
     Route: 065

REACTIONS (5)
  - Dizziness [Unknown]
  - Wrist fracture [Unknown]
  - Contusion [Unknown]
  - Head injury [Unknown]
  - Fall [Unknown]

NARRATIVE: CASE EVENT DATE: 20130616
